FAERS Safety Report 4974155-4 (Version None)
Quarter: 2006Q2

REPORT INFORMATION
  Report Type: 
  Country: None (occurrence: None)
  Receive Date: 20060417
  Receipt Date: 20050930
  Transmission Date: 20061013
  Serious: Yes (Hospitalization, Disabling)
  Sender: FDA-Public Use
  Company Number: US-MERCK-0510USA01360

PATIENT
  Age: 55 Year
  Sex: Female
  Weight: 86 kg

DRUGS (1)
  1. VIOXX [Suspect]
     Indication: RHEUMATOID ARTHRITIS
     Route: 048
     Dates: start: 20010101, end: 20040930

REACTIONS (33)
  - ACQUIRED DIAPHRAGMATIC EVENTRATION [None]
  - ADVERSE EVENT [None]
  - ANAEMIA [None]
  - ARTHRITIS [None]
  - AUTOIMMUNE DISORDER [None]
  - CARDIAC FAILURE CONGESTIVE [None]
  - CARDIOLIPIN ANTIBODY POSITIVE [None]
  - CARDIOVASCULAR DISORDER [None]
  - CEREBROVASCULAR ACCIDENT [None]
  - COLITIS [None]
  - DEPRESSION [None]
  - EPISTAXIS [None]
  - GLOSSODYNIA [None]
  - INFLAMMATORY BOWEL DISEASE [None]
  - ISCHAEMIA [None]
  - LUPUS-LIKE SYNDROME [None]
  - MITRAL VALVE INCOMPETENCE [None]
  - MYOCARDIAL INFARCTION [None]
  - NAUSEA [None]
  - OSTEOARTHRITIS [None]
  - OSTEOPENIA [None]
  - PERICARDIAL EFFUSION [None]
  - PLEURAL EFFUSION [None]
  - PRESCRIBED OVERDOSE [None]
  - PULMONARY EMBOLISM [None]
  - PYREXIA [None]
  - RAYNAUD'S PHENOMENON [None]
  - SALMONELLOSIS [None]
  - SUBCLAVIAN ARTERY THROMBOSIS [None]
  - SWOLLEN TONGUE [None]
  - SYNOVITIS [None]
  - TRICUSPID VALVE INCOMPETENCE [None]
  - UPPER RESPIRATORY TRACT CONGESTION [None]
